FAERS Safety Report 18956051 (Version 1)
Quarter: 2021Q1

REPORT INFORMATION
  Report Type: Spontaneous
  Country: SK (occurrence: SK)
  Receive Date: 20210302
  Receipt Date: 20210302
  Transmission Date: 20210420
  Serious: Yes (Hospitalization)
  Sender: FDA-Public Use
  Company Number: SK-JNJFOC-20210300697

PATIENT
  Age: 88 Year
  Sex: Female
  Weight: 60 kg

DRUGS (6)
  1. XARELTO [Suspect]
     Active Substance: RIVAROXABAN
     Indication: PRODUCT USED FOR UNKNOWN INDICATION
     Dosage: 1?0?0
     Route: 048
  2. DIGOXIN. [Concomitant]
     Active Substance: DIGOXIN
     Dosage: 1?0?0
     Route: 048
  3. EGILOK [Concomitant]
     Active Substance: METOPROLOL TARTRATE
     Dosage: 1?0?1
     Route: 048
  4. DIOMPRAZ [Suspect]
     Active Substance: DICLOFENAC SODIUM\OMEPRAZOLE
     Indication: PRODUCT USED FOR UNKNOWN INDICATION
     Dosage: 75 MG / 20 MG
     Route: 048
  5. ZALDIAR [Concomitant]
     Active Substance: ACETAMINOPHEN\TRAMADOL HYDROCHLORIDE
     Dosage: 1?0?1
     Route: 048
  6. ARTHROTEC FORTE [Suspect]
     Active Substance: DICLOFENAC SODIUM\MISOPROSTOL
     Indication: PRODUCT USED FOR UNKNOWN INDICATION
     Dosage: 1?0?1
     Route: 048

REACTIONS (4)
  - Melaena [Unknown]
  - Anaemia [Unknown]
  - Haematemesis [Unknown]
  - Haematuria [Unknown]

NARRATIVE: CASE EVENT DATE: 20201220
